FAERS Safety Report 4726382-9 (Version None)
Quarter: 2005Q3

REPORT INFORMATION
  Report Type: 
  Country: None (occurrence: None)
  Receive Date: 20050727
  Receipt Date: 20050711
  Transmission Date: 20060218
  Serious: Yes (Disabling, Other)
  Sender: FDA-Public Use
  Company Number: TRP_0171_2005

PATIENT
  Age: 31 Year
  Sex: Female
  Weight: 117.9352 kg

DRUGS (13)
  1. RIBASPHERE [Suspect]
     Indication: HEPATITIS C
     Dates: start: 20050402
  2. PEG-INTRON [Suspect]
     Indication: HEPATITIS C
     Dates: start: 20050402
  3. MULTI-VITAMIN [Concomitant]
  4. NASONEX [Concomitant]
  5. NORCO [Concomitant]
  6. PROMETHAZINE [Concomitant]
  7. SKELAXIN [Concomitant]
  8. URSODEOXYCHOLIC [Concomitant]
  9. VICODIN [Concomitant]
  10. VITAMIN B COMPLEX CAP [Concomitant]
  11. WELLBUTRIN [Concomitant]
  12. NASONEX [Concomitant]
  13. NORCO (HYDROCODONE BITATRATE) [Concomitant]

REACTIONS (10)
  - CRYING [None]
  - DEPRESSION [None]
  - FEAR [None]
  - HALLUCINATION, VISUAL [None]
  - INSOMNIA [None]
  - NAUSEA [None]
  - SUICIDAL IDEATION [None]
  - TREMOR [None]
  - VOMITING [None]
  - WEIGHT DECREASED [None]
